FAERS Safety Report 10004748 (Version 6)
Quarter: 2014Q4

REPORT INFORMATION
  Report Type: Report from Study
  Country: US (occurrence: US)
  Receive Date: 20140312
  Receipt Date: 20141117
  Transmission Date: 20150528
  Serious: Yes (Hospitalization, Other)
  Sender: FDA-Public Use
  Company Number: US-GLAXOSMITHKLINE-A1064424A

PATIENT
  Sex: Female

DRUGS (5)
  1. SALBUTAMOL SULPHATE [Suspect]
     Active Substance: ALBUTEROL SULFATE
     Indication: CHRONIC OBSTRUCTIVE PULMONARY DISEASE
     Route: 055
  2. PLAVIX [Suspect]
     Active Substance: CLOPIDOGREL BISULFATE
     Indication: PRODUCT USED FOR UNKNOWN INDICATION
     Dosage: UNK, U
     Route: 065
  3. COUMADIN [Suspect]
     Active Substance: WARFARIN SODIUM
     Indication: PRODUCT USED FOR UNKNOWN INDICATION
     Dosage: UNK, U
  4. SPIRIVA [Suspect]
     Active Substance: TIOTROPIUM BROMIDE MONOHYDRATE
     Indication: CHRONIC OBSTRUCTIVE PULMONARY DISEASE
     Route: 065
  5. UNKNOWN MEDICATION [Suspect]
     Active Substance: UNSPECIFIED INGREDIENT
     Indication: EX-TOBACCO USER
     Dosage: UNK, U
     Route: 062

REACTIONS (17)
  - Heart rate increased [Unknown]
  - Abdominal distension [Unknown]
  - Sinus operation [Unknown]
  - Cardiac disorder [Unknown]
  - Transient ischaemic attack [Unknown]
  - Facial pain [Unknown]
  - Pain in extremity [Unknown]
  - Chest discomfort [Unknown]
  - Infection [Unknown]
  - Apnoea [Unknown]
  - Back pain [Unknown]
  - Aneurysm [Unknown]
  - Vitamin B12 decreased [Unknown]
  - Adverse event [Unknown]
  - Arteriosclerosis [Unknown]
  - Ill-defined disorder [Unknown]
  - Catheterisation cardiac [Unknown]
